FAERS Safety Report 8876060 (Version 3)
Quarter: 2012Q4

REPORT INFORMATION
  Report Type: 
  Country: JP (occurrence: JP)
  Receive Date: 20121030
  Receipt Date: 20121231
  Transmission Date: 20130627
  Serious: Yes (Hospitalization)
  Sender: FDA-Public Use
  Company Number: JP-009507513-1210JPN011768

PATIENT
  Age: 69 Year
  Sex: Female

DRUGS (4)
  1. JANUVIA TABLETS 50MG [Suspect]
     Indication: DIABETES MELLITUS
     Dosage: 50 mg, qd
     Route: 048
     Dates: end: 20121019
  2. BUFFERIN [Concomitant]
     Dosage: 81 mg, bid, formulation por
     Route: 048
  3. AMLODIPINE BESYLATE [Concomitant]
     Indication: HYPERTENSION
     Dosage: 5 mg, qd, por
     Route: 048
  4. MAIBASTAN [Concomitant]
     Indication: HYPERLIPIDAEMIA
     Dosage: 5 mg, qd, por
     Route: 048

REACTIONS (1)
  - Hypoglycaemia [Recovering/Resolving]
